FAERS Safety Report 6379834-2 (Version None)
Quarter: 2009Q3

REPORT INFORMATION
  Report Type: 
  Country: None (occurrence: None)
  Receive Date: 20090928
  Receipt Date: 20081202
  Transmission Date: 20100115
  Serious: No
  Sender: FDA-Public Use
  Company Number: US-TYCO HEALTHCARE/MALLINCKRODT-T200802072

PATIENT
  Age: 85 Year
  Sex: Female

DRUGS (3)
  1. ACETAMINOPHEN AND HYDROCODONE BITARTRATE [Suspect]
     Indication: BACK PAIN
     Dosage: 10 MG, IN THE AM AND PRN
     Route: 048
     Dates: start: 20060101
  2. ACETAMINOPHEN AND HYDROCODONE BITARTRATE [Suspect]
     Indication: MUSCULOSKELETAL PAIN
  3. ACETAMINOPHEN AND HYDROCODONE BITARTRATE [Suspect]
     Indication: ARTHRALGIA

REACTIONS (1)
  - DRUG SCREEN NEGATIVE [None]
